FAERS Safety Report 6710591-3 (Version None)
Quarter: 2010Q2

REPORT INFORMATION
  Report Type: 
  Country: None (occurrence: None)
  Receive Date: 20100504
  Receipt Date: 20100420
  Transmission Date: 20101027
  Serious: Yes (Hospitalization)
  Sender: FDA-Public Use
  Company Number: US-ROCHE-700759

PATIENT
  Sex: Male
  Weight: 71.9 kg

DRUGS (11)
  1. BEVACIZUMAB [Suspect]
     Indication: MESOTHELIOMA
     Dosage: MOST RECENT DOSE ; 07 APR 2010
     Route: 042
     Dates: start: 20100113
  2. CISPLATIN [Suspect]
     Indication: MESOTHELIOMA
     Dosage: MOST RECENT DOSE : 07 APRIL 2010
     Route: 042
     Dates: start: 20100113
  3. ALIMTA [Suspect]
     Indication: MESOTHELIOMA
     Dosage: MOST RECENT DOSE : 07 APRIL 2010
     Route: 042
     Dates: start: 20100113
  4. ZOFRAN [Concomitant]
  5. REGLAN [Concomitant]
  6. EMEND [Concomitant]
  7. DEXAMETHASONE [Concomitant]
  8. ATIVAN [Concomitant]
  9. MS CONTIN [Concomitant]
  10. SENNA [Concomitant]
  11. MULTI-VITAMIN [Concomitant]

REACTIONS (2)
  - CONVULSION [None]
  - SYNCOPE [None]
